FAERS Safety Report 5049857-4 (Version None)
Quarter: 2006Q3

REPORT INFORMATION
  Report Type: 
  Country: None (occurrence: None)
  Receive Date: 20060706
  Receipt Date: 20060628
  Transmission Date: 20061208
  Serious: Yes (Other)
  Sender: FDA-Public Use
  Company Number: USA-2006-0024532

PATIENT
  Sex: Male

DRUGS (7)
  1. OXYIR CAPSULE 5MG (OXYCODONE HYDROCHLORIDE) CAPSULES, HARD [Suspect]
     Indication: BACK PAIN
     Dosage: 10 MG, TID,
  2. DURAGESIC-100 [Concomitant]
  3. NEURONTIN [Concomitant]
  4. PAXIL [Concomitant]
  5. REMERON [Concomitant]
  6. PRILOSEC [Concomitant]
  7. PRILOSEC [Concomitant]

REACTIONS (2)
  - CONVULSION [None]
  - LOSS OF CONSCIOUSNESS [None]
